FAERS Safety Report 6665892-4 (Version None)
Quarter: 2010Q2

REPORT INFORMATION
  Report Type: 
  Country: None (occurrence: None)
  Receive Date: 20100402
  Receipt Date: 20100325
  Transmission Date: 20101027
  Serious: Yes (Other)
  Sender: FDA-Public Use
  Company Number: FR-ROCHE-693783

PATIENT
  Age: 30 Year
  Sex: Female

DRUGS (3)
  1. CELLCEPT [Suspect]
     Route: 048
     Dates: start: 20080101
  2. CALCIUM [Concomitant]
  3. DIFFU-K [Concomitant]

REACTIONS (1)
  - CERVICAL DYSPLASIA [None]
